FAERS Safety Report 5721784-6 (Version None)
Quarter: 2008Q2

REPORT INFORMATION
  Report Type: 
  Country: None (occurrence: None)
  Receive Date: 20080429
  Receipt Date: 20080417
  Transmission Date: 20081010
  Serious: Yes (Hospitalization)
  Sender: FDA-Public Use
  Company Number: CH-ROCHE-559395

PATIENT
  Sex: Male

DRUGS (9)
  1. CAPECITABINE [Suspect]
     Route: 065
     Dates: start: 20080227
  2. OXALIPLATIN [Suspect]
     Route: 065
     Dates: start: 20080227, end: 20080227
  3. GEMCITABINE [Suspect]
     Route: 065
     Dates: start: 20080227
  4. IMODIUM [Concomitant]
     Route: 048
     Dates: start: 20080301
  5. NOVALGIN [Concomitant]
     Route: 048
     Dates: start: 20080220, end: 20080312
  6. COSOPT [Concomitant]
     Dosage: START DATE REPORTED AS 2008. DRUG NAME REPORTED AS COSOPT-S.
  7. COSOPT [Concomitant]
     Dosage: START DATE REPORTED AS 2008. DRUG NAME REPORTED AS COSOPT-S.
  8. ACTRAPHANE [Concomitant]
     Dosage: TDD REPORTED AS 0-0-7. START DATE REPORTED AS 2008.
     Dates: end: 20080307
  9. ACTRAPID [Concomitant]
     Dosage: TDD REPORTED AS 10-4-0. START DATE REPORTED AS 2008.
     Route: 058
     Dates: end: 20080307

REACTIONS (3)
  - ASTHENIA [None]
  - DEHYDRATION [None]
  - DIABETES MELLITUS INADEQUATE CONTROL [None]
